FAERS Safety Report 10087940 (Version 1)
Quarter: 2014Q2

REPORT INFORMATION
  Report Type: Spontaneous
  Country: CA (occurrence: CA)
  Receive Date: 20140419
  Receipt Date: 20140419
  Transmission Date: 20141212
  Serious: Yes (Other)
  Sender: FDA-Public Use
  Company Number: CA-ROCHE-1386408

PATIENT
  Sex: Male

DRUGS (5)
  1. XOLAIR [Suspect]
     Indication: ASTHMA
     Route: 058
     Dates: start: 20130618
  2. XOLAIR [Suspect]
     Route: 058
     Dates: start: 20131210
  3. ZENHALE [Concomitant]
  4. ALLEGRA [Concomitant]
  5. SINGULAIR [Concomitant]

REACTIONS (4)
  - Pneumonia [Unknown]
  - Lip swelling [Unknown]
  - Body temperature decreased [Unknown]
  - Eye pruritus [Unknown]
